FAERS Safety Report 9431920 (Version 1)
Quarter: 2013Q3

REPORT INFORMATION
  Report Type: Spontaneous
  Country: BD (occurrence: BD)
  Receive Date: 20130731
  Receipt Date: 20130731
  Transmission Date: 20140515
  Serious: Yes (Death)
  Sender: FDA-Public Use
  Company Number: PHHY2013BD080194

PATIENT
  Age: 75 Year
  Sex: Female

DRUGS (2)
  1. EXELON PATCH [Suspect]
     Indication: DEMENTIA
     Dosage: 4.6 MG, DAILY
     Route: 062
     Dates: start: 20130713
  2. ANTIHYPERTENSIVES [Concomitant]
     Dosage: UNK UKN, UNK

REACTIONS (2)
  - General physical health deterioration [Fatal]
  - Renal disorder [Fatal]
